FAERS Safety Report 7902634-6 (Version None)
Quarter: 2011Q4

REPORT INFORMATION
  Report Type: 
  Country: None (occurrence: None)
  Receive Date: 20111108
  Receipt Date: 20111101
  Transmission Date: 20120403
  Serious: Yes (Hospitalization)
  Sender: FDA-Public Use
  Company Number: US-US-EMD SERONO, INC.-7091323

PATIENT
  Sex: Female
  Weight: 87 kg

DRUGS (10)
  1. IMDUR [Concomitant]
  2. REBIF [Suspect]
     Indication: MULTIPLE SCLEROSIS
     Route: 058
     Dates: start: 20061101, end: 20110101
  3. ESTRADIOL [Concomitant]
  4. SINGULAIR [Concomitant]
     Indication: ASTHMA
  5. PRILOSEC [Concomitant]
  6. ADVAIR DISKUS 100/50 [Concomitant]
  7. AMANTADINE HCL [Concomitant]
     Indication: FATIGUE
  8. REBIF [Suspect]
     Dates: start: 20111020
  9. VERAPAMIL [Concomitant]
     Indication: HYPERTENSION
  10. AMITRIPTYLINE HCL [Concomitant]
     Indication: SLEEP DISORDER

REACTIONS (1)
  - DIVERTICULITIS [None]
